FAERS Safety Report 12256921 (Version 1)
Quarter: 2016Q2

REPORT INFORMATION
  Report Type: Other
  Country: US (occurrence: US)
  Receive Date: 20160412
  Receipt Date: 20160412
  Transmission Date: 20160815
  Serious: Yes (Hospitalization, Other)
  Sender: FDA-Public Use
  Company Number: US-SHIRE-US201603054

PATIENT
  Age: 48 Year
  Sex: Female
  Weight: 51.93 kg

DRUGS (3)
  1. GATTEX [Suspect]
     Active Substance: TEDUGLUTIDE\WATER
     Indication: SHORT-BOWEL SYNDROME
     Dosage: 0.13 ML, 1X/DAY:QD
     Route: 058
     Dates: start: 20160308, end: 201604
  2. COMPAZINE [Concomitant]
     Active Substance: PROCHLORPERAZINE MALEATE
     Indication: PRODUCT USED FOR UNKNOWN INDICATION
     Dosage: UNK, UNKNOWN
     Route: 065
  3. GATTEX [Suspect]
     Active Substance: TEDUGLUTIDE\WATER
     Dosage: 0.13 ML, EVERY OTHER DAY
     Route: 058
     Dates: start: 201604

REACTIONS (9)
  - Abdominal pain [Recovered/Resolved]
  - Ill-defined disorder [Not Recovered/Not Resolved]
  - Weight increased [Unknown]
  - Vomiting [Unknown]
  - Inappropriate schedule of drug administration [Not Recovered/Not Resolved]
  - Asthenia [Not Recovered/Not Resolved]
  - Nausea [Recovered/Resolved]
  - Gastric haemorrhage [Unknown]
  - Fatigue [Unknown]

NARRATIVE: CASE EVENT DATE: 20160314
